FAERS Safety Report 22143190 (Version 1)
Quarter: 2023Q1

REPORT INFORMATION
  Report Type: Spontaneous
  Country: None (occurrence: FR)
  Receive Date: 20230327
  Receipt Date: 20230327
  Transmission Date: 20230417
  Serious: Yes (Life-Threatening, Other)
  Sender: FDA-Public Use
  Company Number: FR-B.Braun Medical Inc.-2139587

PATIENT
  Age: 21 Year
  Sex: Female
  Weight: 56.8 kg

DRUGS (20)
  1. CEFOXITIN AND DEXTROSE [Suspect]
     Active Substance: CEFOXITIN SODIUM
     Indication: Antibiotic prophylaxis
  2. IOBITRIDOL [Suspect]
     Active Substance: IOBITRIDOL
  3. MORPHINE [Suspect]
     Active Substance: MORPHINE
  4. DEXAMETHASONE [Suspect]
     Active Substance: DEXAMETHASONE
  5. DROPERIDOL [Suspect]
     Active Substance: DROPERIDOL
  6. BRIDION [Suspect]
     Active Substance: SUGAMMADEX
  7. PIPERACILLIN SODIUM\TAZOBACTAM SODIUM [Suspect]
     Active Substance: PIPERACILLIN SODIUM\TAZOBACTAM SODIUM
  8. KETOPROFEN [Suspect]
     Active Substance: KETOPROFEN
  9. ONDANSETRON [Suspect]
     Active Substance: ONDANSETRON
  10. UNSPECIFIED INGREDIENT [Suspect]
     Active Substance: UNSPECIFIED INGREDIENT
  11. PROPOFOL [Suspect]
     Active Substance: PROPOFOL
  12. METRONIDAZOLE [Suspect]
     Active Substance: METRONIDAZOLE
  13. SUFENTANIL [Suspect]
     Active Substance: SUFENTANIL
  14. EPHEDRINE [Suspect]
     Active Substance: EPHEDRINE
  15. KETAMINE [Suspect]
     Active Substance: KETAMINE
  16. ROCURONIUM BROMIDE [Suspect]
     Active Substance: ROCURONIUM BROMIDE
  17. TRIMEBUTINE MALEATE [Suspect]
     Active Substance: TRIMEBUTINE MALEATE
  18. UNSPECIFIED INGREDIENT [Suspect]
     Active Substance: UNSPECIFIED INGREDIENT
  19. LOVENOX [Concomitant]
     Active Substance: ENOXAPARIN SODIUM
  20. PHLOROGLUCINOL [Concomitant]
     Active Substance: PHLOROGLUCINOL

REACTIONS (1)
  - Drug reaction with eosinophilia and systemic symptoms [Recovered/Resolved]
